FAERS Safety Report 8937132 (Version 1)
Quarter: 2012Q4

REPORT INFORMATION
  Report Type: Spontaneous
  Country: GB (occurrence: None)
  Receive Date: 20121121
  Receipt Date: 20121121
  Transmission Date: 20130627
  Serious: Yes (Other)
  Sender: FDA-Public Use
  Company Number: AUR-APL-2012-04877

PATIENT
  Age: 66 Year
  Sex: Male

DRUGS (3)
  1. RIBAVIRIN [Suspect]
     Indication: HEPATITIS C
     Dosage: (2 in 1 D)
     Route: 048
  2. PEGINTERFERON ALFA 2B [Suspect]
     Indication: HEPATITIS C
     Dosage: 0.1429 dosage forms (1 dosage forms 1 in 1 wk)
  3. TELAPREVIR [Suspect]
     Indication: HEPATITIS C
     Dosage: 750 mg, 3 in 1 D)
     Route: 048

REACTIONS (4)
  - Oedema peripheral [None]
  - Joint swelling [None]
  - Joint swelling [None]
  - Dyspnoea exertional [None]
